FAERS Safety Report 14373492 (Version 1)
Quarter: 2018Q1

REPORT INFORMATION
  Report Type: Spontaneous
  Country: US (occurrence: US)
  Receive Date: 20180110
  Receipt Date: 20180110
  Transmission Date: 20180509
  Serious: Yes (Other)
  Sender: FDA-Public Use
  Company Number: US-GLAXOSMITHKLINE-US2018000801

PATIENT
  Age: 45 Year
  Sex: Female

DRUGS (1)
  1. AQUAFRESH EXTREME CLEAN WHITENING ACTION [Suspect]
     Active Substance: SODIUM FLUORIDE
     Indication: DENTAL CLEANING
     Dosage: UNK
     Dates: start: 20171220

REACTIONS (1)
  - Oral bacterial infection [Unknown]

NARRATIVE: CASE EVENT DATE: 20171220
